FAERS Safety Report 15577564 (Version 1)
Quarter: 2018Q4

REPORT INFORMATION
  Report Type: Spontaneous
  Country: US (occurrence: US)
  Receive Date: 20181102
  Receipt Date: 20181102
  Transmission Date: 20190205
  Serious: No
  Sender: FDA-Public Use
  Company Number: US-HETERO CORPORATE-HET2018US01153

PATIENT
  Age: 59 Year
  Sex: Female
  Weight: 62.59 kg

DRUGS (1)
  1. MONTELUKAST [Suspect]
     Active Substance: MONTELUKAST SODIUM
     Indication: COUGH
     Dosage: 10 MG, QD
     Route: 065
     Dates: start: 20180625

REACTIONS (5)
  - Pyrexia [Recovered/Resolved]
  - Gait disturbance [Recovered/Resolved]
  - Ocular hyperaemia [Recovered/Resolved]
  - Chest pain [Recovered/Resolved]
  - Back pain [Recovered/Resolved]

NARRATIVE: CASE EVENT DATE: 201806
